FAERS Safety Report 9703296 (Version 3)
Quarter: 2013Q4

REPORT INFORMATION
  Report Type: Report from Study
  Country: MX (occurrence: MX)
  Receive Date: 20131122
  Receipt Date: 20131128
  Transmission Date: 20140711
  Serious: Yes (Hospitalization, Other)
  Sender: FDA-Public Use
  Company Number: MX-ROCHE-1238443

PATIENT
  Age: 46 Year
  Sex: Male

DRUGS (1)
  1. XELODA [Suspect]
     Indication: COLORECTAL CANCER METASTATIC
     Dosage: END DATE //2012
     Route: 048
     Dates: start: 201209

REACTIONS (12)
  - Ileostomy [Unknown]
  - Pyrexia [Not Recovered/Not Resolved]
  - Immunology test abnormal [Unknown]
  - Depression [Unknown]
  - Platelet count decreased [Unknown]
  - Anaemia [Unknown]
  - Dehydration [Unknown]
  - Diarrhoea [Unknown]
  - Depressed mood [Unknown]
  - Nausea [Not Recovered/Not Resolved]
  - Chills [Not Recovered/Not Resolved]
  - Renal disorder [Not Recovered/Not Resolved]
